FAERS Safety Report 10052173 (Version 1)
Quarter: 2014Q2

REPORT INFORMATION
  Report Type: Spontaneous
  Country: US (occurrence: US)
  Receive Date: 20140402
  Receipt Date: 20140402
  Transmission Date: 20141212
  Serious: No
  Sender: FDA-Public Use
  Company Number: US-009507513-1403USA013214

PATIENT
  Age: 23 Year
  Sex: Female
  Weight: 79.82 kg

DRUGS (1)
  1. IMPLANON [Suspect]
     Indication: CONTRACEPTION
     Dosage: 1 ROD/3 YEARS; INSERT LEFT ARM
     Route: 059
     Dates: start: 20130801

REACTIONS (8)
  - Joint dislocation [Unknown]
  - Peripheral swelling [Unknown]
  - Road traffic accident [Unknown]
  - Device dislocation [Unknown]
  - Headache [Unknown]
  - Amenorrhoea [Unknown]
  - Menorrhagia [Recovered/Resolved]
  - Decreased appetite [Unknown]
